FAERS Safety Report 6897504-9 (Version None)
Quarter: 2010Q3

REPORT INFORMATION
  Report Type: 
  Country: None (occurrence: None)
  Receive Date: 20100802
  Receipt Date: 20070605
  Transmission Date: 20110219
  Serious: No
  Sender: FDA-Public Use
  Company Number: US-PFIZER INC-2007047696

PATIENT
  Sex: Male
  Weight: 81.818 kg

DRUGS (8)
  1. LYRICA [Suspect]
     Indication: SCIATIC NERVE INJURY
     Route: 048
     Dates: start: 20070604
  2. LYRICA [Suspect]
     Indication: NERVE INJURY
  3. NEXIUM [Concomitant]
  4. ALLOPURINOL [Concomitant]
  5. GLUCOSAMINE [Concomitant]
  6. VITAMIN E [Concomitant]
  7. FISH OIL [Concomitant]
  8. ALL OTHER THERAPEUTIC PRODUCTS [Concomitant]

REACTIONS (2)
  - DRY MOUTH [None]
  - MUSCLE SPASMS [None]
